FAERS Safety Report 13322975 (Version 1)
Quarter: 2017Q1

REPORT INFORMATION
  Report Type: Spontaneous
  Country: DE (occurrence: DE)
  Receive Date: 20170310
  Receipt Date: 20170310
  Transmission Date: 20170428
  Serious: Yes (Hospitalization)
  Sender: FDA-Public Use
  Company Number: US-ASTRAZENECA-2017SE25588

PATIENT
  Age: 517 Day
  Sex: Male
  Weight: 10 kg

DRUGS (14)
  1. PALIVIZUMAB [Suspect]
     Active Substance: PALIVIZUMAB
     Indication: PREMATURE BABY
     Route: 030
     Dates: start: 20161216
  2. PALIVIZUMAB [Suspect]
     Active Substance: PALIVIZUMAB
     Indication: BRONCHOPULMONARY DYSPLASIA
     Dosage: 50.0MG UNKNOWN
     Route: 030
     Dates: start: 20170202, end: 20170202
  3. PALIVIZUMAB [Suspect]
     Active Substance: PALIVIZUMAB
     Indication: RESPIRATORY FAILURE
     Dosage: 50.0MG UNKNOWN
     Route: 030
     Dates: start: 20170202, end: 20170202
  4. PALIVIZUMAB [Suspect]
     Active Substance: PALIVIZUMAB
     Indication: BRONCHOPULMONARY DYSPLASIA
     Dosage: 100.0MG UNKNOWN
     Route: 030
     Dates: start: 20170202, end: 20170202
  5. PULMICORT TURBUHALER [Concomitant]
     Active Substance: BUDESONIDE
     Indication: PRODUCT USED FOR UNKNOWN INDICATION
  6. PALIVIZUMAB [Suspect]
     Active Substance: PALIVIZUMAB
     Indication: RESPIRATORY FAILURE
     Route: 030
     Dates: start: 20161216
  7. PALIVIZUMAB [Suspect]
     Active Substance: PALIVIZUMAB
     Indication: BRONCHITIS
     Dosage: 100.0MG UNKNOWN
     Route: 030
     Dates: start: 20170202, end: 20170202
  8. PALIVIZUMAB [Suspect]
     Active Substance: PALIVIZUMAB
     Indication: BRONCHITIS
     Route: 030
     Dates: start: 20161216
  9. PALIVIZUMAB [Suspect]
     Active Substance: PALIVIZUMAB
     Indication: BRONCHOPULMONARY DYSPLASIA
     Route: 030
     Dates: start: 20161216
  10. PALIVIZUMAB [Suspect]
     Active Substance: PALIVIZUMAB
     Indication: PREMATURE BABY
     Dosage: 50.0MG UNKNOWN
     Route: 030
     Dates: start: 20170202, end: 20170202
  11. SALBUTAMOL [Concomitant]
     Active Substance: ALBUTEROL
     Indication: PRODUCT USED FOR UNKNOWN INDICATION
     Dosage: AS NECESSARY
  12. PALIVIZUMAB [Suspect]
     Active Substance: PALIVIZUMAB
     Indication: RESPIRATORY FAILURE
     Dosage: 100.0MG UNKNOWN
     Route: 030
     Dates: start: 20170202, end: 20170202
  13. PALIVIZUMAB [Suspect]
     Active Substance: PALIVIZUMAB
     Indication: BRONCHITIS
     Dosage: 50.0MG UNKNOWN
     Route: 030
     Dates: start: 20170202, end: 20170202
  14. PALIVIZUMAB [Suspect]
     Active Substance: PALIVIZUMAB
     Indication: PREMATURE BABY
     Dosage: 100.0MG UNKNOWN
     Route: 030
     Dates: start: 20170202, end: 20170202

REACTIONS (2)
  - Respiratory syncytial virus bronchiolitis [Not Recovered/Not Resolved]
  - Respiratory failure [Not Recovered/Not Resolved]

NARRATIVE: CASE EVENT DATE: 20170220
